FAERS Safety Report 6043655-0 (Version None)
Quarter: 2009Q1

REPORT INFORMATION
  Report Type: 
  Country: None (occurrence: None)
  Receive Date: 20090120
  Receipt Date: 20090112
  Transmission Date: 20090719
  Serious: Yes (Hospitalization)
  Sender: FDA-Public Use
  Company Number: KR-BRISTOL-MYERS SQUIBB COMPANY-14465207

PATIENT
  Age: 47 Year
  Sex: Female

DRUGS (3)
  1. CISPLATIN [Suspect]
     Indication: HEAD AND NECK CANCER
     Dosage: RECENT INF 20NOV08
     Route: 042
     Dates: start: 20080929
  2. DOCETAXEL [Suspect]
     Indication: HEAD AND NECK CANCER
     Dosage: RECENT INF 29AUG08
     Route: 042
     Dates: start: 20080717
  3. RADIOTHERAPY [Suspect]
     Indication: HEAD AND NECK CANCER

REACTIONS (1)
  - DYSPNOEA [None]
